FAERS Safety Report 13082369 (Version 2)
Quarter: 2017Q1

REPORT INFORMATION
  Report Type: Spontaneous
  Country: IT (occurrence: IT)
  Receive Date: 20170103
  Receipt Date: 20170301
  Transmission Date: 20170428
  Serious: Yes (Life-Threatening)
  Sender: FDA-Public Use
  Company Number: IT-MYLANLABS-2016M1058666

PATIENT

DRUGS (2)
  1. ESCITALOPRAM [Suspect]
     Active Substance: ESCITALOPRAM OXALATE
     Indication: PSYCHOTIC DISORDER
     Dosage: UNK
  2. LITHIUM. [Interacting]
     Active Substance: LITHIUM
     Indication: PSYCHOTIC DISORDER
     Dosage: UNK

REACTIONS (5)
  - Musculoskeletal stiffness [Recovering/Resolving]
  - Tremor [Recovering/Resolving]
  - Depressed level of consciousness [Recovering/Resolving]
  - Rhabdomyolysis [Recovering/Resolving]
  - Labelled drug-drug interaction medication error [Recovering/Resolving]
